FAERS Safety Report 7638676-8 (Version None)
Quarter: 2011Q3

REPORT INFORMATION
  Report Type: 
  Country: None (occurrence: None)
  Receive Date: 20110720
  Receipt Date: 20110706
  Transmission Date: 20111222
  Serious: Yes (Death, Other)
  Sender: FDA-Public Use
  Company Number: 1000022047

PATIENT
  Age: 71 Year
  Sex: Female

DRUGS (5)
  1. DIHYDROCODEINE BITARTRATE INJ [Suspect]
  2. CITALOPRAM HYDROBROMIDE [Suspect]
  3. CHLORPHENIRAMINE MALEATE [Suspect]
  4. ALCOHOL (ETHANOL) [Suspect]
  5. WARFARIN SODIUM [Concomitant]

REACTIONS (4)
  - DIZZINESS [None]
  - TOXICITY TO VARIOUS AGENTS [None]
  - RESUSCITATION [None]
  - CIRCULATORY COLLAPSE [None]
